FAERS Safety Report 8481486-2 (Version None)
Quarter: 2012Q2

REPORT INFORMATION
  Report Type: 
  Country: None (occurrence: None)
  Receive Date: 20120625
  Receipt Date: 20120615
  Transmission Date: 20120825
  Serious: Yes (Other)
  Sender: FDA-Public Use
  Company Number: 7140510

PATIENT
  Age: 2 Year
  Sex: Male

DRUGS (1)
  1. LEVOTHYROXINE SODIUM [Suspect]
     Indication: ACCIDENTAL DRUG INTAKE BY CHILD
     Dosage: 5 TO 6 TABLETS (50 MCG/TABLET) (ONCE)
     Route: 048
     Dates: start: 20120615, end: 20120615

REACTIONS (1)
  - ACCIDENTAL DRUG INTAKE BY CHILD [None]
